FAERS Safety Report 5614988-4 (Version None)
Quarter: 2008Q1

REPORT INFORMATION
  Report Type: 
  Country: None (occurrence: None)
  Receive Date: 20080206
  Receipt Date: 20080123
  Transmission Date: 20080703
  Serious: Yes (Hospitalization)
  Sender: FDA-Public Use
  Company Number: PHHO2008US01040

PATIENT
  Age: 76 Year
  Sex: Male
  Weight: 67.12 kg

DRUGS (6)
  1. EXELON [Suspect]
     Indication: DEMENTIA ALZHEIMER'S TYPE
     Dosage: DOUBLE BLIND
     Route: 062
     Dates: start: 20071202, end: 20071230
  2. ATENOLOL [Concomitant]
     Indication: HYPERTENSION
  3. LIPITOR [Concomitant]
     Indication: HYPERLIPIDAEMIA
  4. CITALOPRAM HYDROBROMIDE [Concomitant]
     Indication: DEPRESSION
  5. PERCOCET [Concomitant]
  6. TYLENOL [Concomitant]

REACTIONS (5)
  - CATHETER PLACEMENT [None]
  - DEPRESSED LEVEL OF CONSCIOUSNESS [None]
  - OBSTRUCTIVE UROPATHY [None]
  - PROSTATIC OBSTRUCTION [None]
  - URINE OUTPUT DECREASED [None]
